FAERS Safety Report 12788526 (Version 3)
Quarter: 2016Q4

REPORT INFORMATION
  Report Type: Spontaneous
  Country: PL (occurrence: PL)
  Receive Date: 20160928
  Receipt Date: 20161005
  Transmission Date: 20170207
  Serious: Yes (Hospitalization)
  Sender: FDA-Public Use
  Company Number: PL-B.I. PHARMACEUTICALS,INC./RIDGEFIELD-2016-BI-63291PN

PATIENT
  Age: 78 Year
  Sex: Female
  Weight: 68 kg

DRUGS (1)
  1. PRADAXA [Suspect]
     Active Substance: DABIGATRAN ETEXILATE MESYLATE
     Indication: ATRIAL FIBRILLATION
     Route: 048
     Dates: end: 20160925

REACTIONS (1)
  - Gastrointestinal necrosis [Not Recovered/Not Resolved]

NARRATIVE: CASE EVENT DATE: 20160925
